FAERS Safety Report 10600677 (Version 2)
Quarter: 2014Q4

REPORT INFORMATION
  Report Type: Spontaneous
  Country: US (occurrence: US)
  Receive Date: 20141124
  Receipt Date: 20141211
  Transmission Date: 20150529
  Serious: No
  Sender: FDA-Public Use
  Company Number: US-AMGEN INC.-USASP2014088764

PATIENT
  Age: 39 Year
  Sex: Female
  Weight: 84.81 kg

DRUGS (3)
  1. ENBREL [Suspect]
     Active Substance: ETANERCEPT
     Indication: RHEUMATOID ARTHRITIS
     Dosage: 50 MG, QWK
     Route: 065
     Dates: start: 20140611, end: 20141031
  2. METHOTREXATE [Concomitant]
     Active Substance: METHOTREXATE
     Dosage: FOUR TABLETS (2.5 MG EACH) ONCE A WEEK
     Route: 048
     Dates: start: 2013
  3. FLU [Concomitant]
     Active Substance: INFLUENZA VIRUS VACCINE
     Dates: start: 201410, end: 201410

REACTIONS (8)
  - Rhinorrhoea [Recovered/Resolved]
  - Ear pain [Recovered/Resolved]
  - Nasal congestion [Recovered/Resolved]
  - Pain [Recovered/Resolved]
  - Pyrexia [Recovered/Resolved]
  - Productive cough [Not Recovered/Not Resolved]
  - Oropharyngeal pain [Recovered/Resolved]
  - Wheezing [Not Recovered/Not Resolved]

NARRATIVE: CASE EVENT DATE: 20141106
